FAERS Safety Report 4421145-6 (Version None)
Quarter: 2004Q3

REPORT INFORMATION
  Report Type: 
  Country: None (occurrence: None)
  Receive Date: 20040804
  Receipt Date: 20040723
  Transmission Date: 20050211
  Serious: Yes (Other)
  Sender: FDA-Public Use
  Company Number: 207562

PATIENT
  Age: 70 Year
  Sex: Male

DRUGS (19)
  1. RITUXAN [Suspect]
     Indication: MANTLE CELL LYMPHOMA
     Dosage: 675 MG INTRAVENOUS
     Route: 042
     Dates: start: 20040206
  2. FLUDARABINE PHOSPHATE [Suspect]
     Indication: MANTLE CELL LYMPHOMA
     Dosage: 70 MG QD ORAL
     Route: 048
     Dates: start: 20040105, end: 20040107
  3. CYCLOPHOSPHAMIDE [Suspect]
     Indication: MANTLE CELL LYMPHOMA
     Dosage: 450 MG QD ORAL
     Route: 048
     Dates: start: 20040105, end: 20040107
  4. RASBURICASE (RASBURICASE) [Concomitant]
  5. GASTROGRAFIN (DIATROZOATE MEGLUMINE) [Concomitant]
  6. BECLOMETHASONE (BECLOMETHASONE DIPROPIONATE) [Concomitant]
  7. GRANISETRON (GRANISETRON HYDROCHLORIDE) [Concomitant]
  8. DOMPERIDONE (DOMPERIDONE) [Concomitant]
  9. LANSOPRAZOLE [Concomitant]
  10. SULFAMETHOXAZOLE + TRIMETHOPRIM [Concomitant]
  11. CHLORHEXIDINE MOUTHWASH (CHLORHEXIDINE GLUCONATE) [Concomitant]
  12. NYSTATIN [Concomitant]
  13. METOCLOPRAMIDE [Concomitant]
  14. FUROSEMIDE [Concomitant]
  15. VENTOLIN (ALBUTEROL SULFATE, ALBUTEROL) [Concomitant]
  16. MEPERIDINE HCL [Concomitant]
  17. ALLOPURINOL [Concomitant]
  18. ACETAMINOPHEN [Concomitant]
  19. CHLORPHENIRAMINE MALEATE [Concomitant]

REACTIONS (3)
  - BIOPSY BONE MARROW ABNORMAL [None]
  - GASTROINTESTINAL HAEMORRHAGE [None]
  - PANCYTOPENIA [None]
